FAERS Safety Report 13579638 (Version 1)
Quarter: 2017Q2

REPORT INFORMATION
  Report Type: Spontaneous
  Country: US (occurrence: US)
  Receive Date: 20170524
  Receipt Date: 20170524
  Transmission Date: 20170830
  Serious: Yes (Other)
  Sender: FDA-Public Use
  Company Number: None

PATIENT
  Age: 53 Year
  Sex: Female
  Weight: 72 kg

DRUGS (1)
  1. SAXENDA [Suspect]
     Active Substance: LIRAGLUTIDE
     Indication: WEIGHT DECREASED
     Dosage: QUANTITY:90 INJECTION(S); AT BEDTIME?
     Route: 058
     Dates: start: 20170323, end: 20170501

REACTIONS (2)
  - Pancreatitis acute [None]
  - Cholelithiasis [None]

NARRATIVE: CASE EVENT DATE: 20170502
